FAERS Safety Report 19139961 (Version 2)
Quarter: 2021Q2

REPORT INFORMATION
  Report Type: Spontaneous
  Country: ES (occurrence: ES)
  Receive Date: 20210415
  Receipt Date: 20210630
  Transmission Date: 20210717
  Serious: Yes (Life-Threatening, Hospitalization)
  Sender: FDA-Public Use
  Company Number: ES-MYLANLABS-2021M1022259

PATIENT
  Age: 70 Year
  Sex: Male

DRUGS (7)
  1. QUETIAPINE. [Suspect]
     Active Substance: QUETIAPINE
     Indication: AGITATION
     Dosage: 175 MILLIGRAM, QD
     Route: 048
     Dates: start: 20201021, end: 20201022
  2. QUETIAPINE. [Interacting]
     Active Substance: QUETIAPINE
     Dosage: 150 MILLIGRAM, QD (1?2?3)
     Route: 048
     Dates: start: 20201019, end: 20201020
  3. FORMOTEROL ALDO UNION [Concomitant]
     Indication: CHRONIC OBSTRUCTIVE PULMONARY DISEASE
     Dosage: 12 MICROGRAM, BID ( (1 INHALE EVERY 12 HOURS)
     Route: 055
     Dates: start: 20191014, end: 20201218
  4. DISTRANEURINE                      /00027501/ [Interacting]
     Active Substance: CLOMETHIAZOLE
     Indication: AGITATION
     Dosage: 192 MILLIGRAM, QD (0?0?1)
     Route: 048
     Dates: start: 20201020, end: 20201022
  5. QUETIAPINE. [Interacting]
     Active Substance: QUETIAPINE
     Dosage: 100 MILLIGRAM, QD (1?1?2)
     Route: 048
     Dates: start: 20201018, end: 20201019
  6. HALOPERIDOL. [Interacting]
     Active Substance: HALOPERIDOL
     Indication: AGITATION
     Dosage: 10 MILLIGRAM, TOTAL, AS A RESCUE
     Route: 042
     Dates: start: 20201021, end: 20201021
  7. CLOMIPRAMINA                       /00116802/ [Interacting]
     Active Substance: CLOMIPRAMINE HYDROCHLORIDE
     Indication: CONFUSIONAL STATE
     Dosage: 37.5 MILLIGRAM, BID (1?0?1)
     Route: 048
     Dates: start: 20201021, end: 20201022

REACTIONS (3)
  - Drug interaction [Unknown]
  - Neuroleptic malignant syndrome [Recovering/Resolving]
  - Off label use [Unknown]

NARRATIVE: CASE EVENT DATE: 20201021
